FAERS Safety Report 7488207-0 (Version None)
Quarter: 2011Q2

REPORT INFORMATION
  Report Type: 
  Country: None (occurrence: None)
  Receive Date: 20110518
  Receipt Date: 20110510
  Transmission Date: 20111010
  Serious: Yes (Other)
  Sender: FDA-Public Use
  Company Number: PHHY2010BR74688

PATIENT
  Sex: Female

DRUGS (2)
  1. CLOPIDOGREL [Concomitant]
     Dosage: 75MG
  2. EXELON [Suspect]
     Dosage: 9.5 MG/24 HOURS
     Route: 062
     Dates: start: 20101023

REACTIONS (5)
  - FATIGUE [None]
  - NAUSEA [None]
  - PULMONARY EMBOLISM [None]
  - HAEMATOCHEZIA [None]
  - VOMITING [None]
